FAERS Safety Report 9771666 (Version 2)
Quarter: 2013Q4

REPORT INFORMATION
  Report Type: Spontaneous
  Country: US (occurrence: US)
  Receive Date: 20131219
  Receipt Date: 20131219
  Transmission Date: 20140711
  Serious: Yes (Hospitalization)
  Sender: FDA-Public Use
  Company Number: US-AMGEN-USASP2013081547

PATIENT
  Age: 88 Year
  Sex: Female
  Weight: 63.31 kg

DRUGS (6)
  1. XGEVA [Suspect]
     Indication: BREAST CANCER METASTATIC
     Dosage: 120 MG, QMO
     Route: 058
     Dates: start: 20131017, end: 20131017
  2. CALCIUM [Concomitant]
     Dosage: 1200 MG, QD
     Route: 048
     Dates: start: 20131004
  3. VITAMIN D                          /00107901/ [Concomitant]
     Dosage: 800 MG, QD
     Route: 048
     Dates: start: 20131004
  4. ONDANSETRON [Concomitant]
     Dosage: 8 MG, QD
     Route: 048
     Dates: start: 20131111
  5. OXYCODON [Concomitant]
     Dosage: 5 MG, Q4H
     Route: 048
     Dates: start: 20131111
  6. POTASSIUM [Concomitant]
     Dosage: 10 MUG, TID
     Route: 048
     Dates: start: 20131111

REACTIONS (3)
  - Hypoaesthesia [Unknown]
  - Muscle twitching [Unknown]
  - Hypocalcaemia [Recovered/Resolved]
